FAERS Safety Report 25450471 (Version 1)
Quarter: 2025Q2

REPORT INFORMATION
  Report Type: Spontaneous
  Country: US (occurrence: None)
  Receive Date: 20250617
  Receipt Date: 20250617
  Transmission Date: 20250717
  Serious: Yes (Other)
  Sender: FDA-CTU
  Company Number: None

PATIENT
  Age: 69 Year
  Sex: Female

DRUGS (2)
  1. AVASTIN [Suspect]
     Active Substance: BEVACIZUMAB
     Indication: Ovarian cancer
  2. LYNPARZA [Suspect]
     Active Substance: OLAPARIB

REACTIONS (4)
  - Ovarian cancer recurrent [None]
  - Asthenia [None]
  - Pain [None]
  - Nausea [None]
